FAERS Safety Report 9290070 (Version 1)
Quarter: 2013Q2

REPORT INFORMATION
  Report Type: Spontaneous
  Country: US (occurrence: US)
  Receive Date: 20130515
  Receipt Date: 20130515
  Transmission Date: 20140414
  Serious: Yes (Other)
  Sender: FDA-Public Use
  Company Number: US-JNJFOC-20130503196

PATIENT
  Age: 58 Year
  Sex: Female

DRUGS (4)
  1. TAPENTADOL HYDROCHLORIDE [Suspect]
     Indication: NEUROPATHY PERIPHERAL
     Route: 065
  2. TAPENTADOL HYDROCHLORIDE [Suspect]
     Indication: NEUROPATHY PERIPHERAL
     Route: 065
  3. CLONIDINE [Interacting]
     Indication: BLOOD PRESSURE
     Route: 065
  4. CLONIDINE [Interacting]
     Indication: BLOOD PRESSURE
     Route: 065

REACTIONS (3)
  - Hypertension [Recovered/Resolved]
  - Drug interaction [Recovered/Resolved]
  - Heart rate increased [Recovered/Resolved]
